FAERS Safety Report 20710332 (Version 1)
Quarter: 2022Q2

REPORT INFORMATION
  Report Type: Spontaneous
  Country: US (occurrence: US)
  Receive Date: 20220414
  Receipt Date: 20220414
  Transmission Date: 20220721
  Serious: No
  Sender: FDA-Public Use
  Company Number: US-PFIZER INC-202100935777

PATIENT
  Age: 71 Year
  Sex: Female
  Weight: 65.77 kg

DRUGS (1)
  1. CHANTIX [Suspect]
     Active Substance: VARENICLINE TARTRATE
     Indication: Smoking cessation therapy
     Dosage: 1 MG, 2X/DAY(1MG TWICE A DAY)
     Dates: start: 20200922, end: 202010

REACTIONS (5)
  - Nausea [Recovered/Resolved]
  - Weight decreased [Recovered/Resolved]
  - Intentional product misuse [Not Recovered/Not Resolved]
  - Recalled product administered [Unknown]
  - Feeding disorder [Unknown]

NARRATIVE: CASE EVENT DATE: 20200922
